FAERS Safety Report 16322100 (Version 1)
Quarter: 2019Q2

REPORT INFORMATION
  Report Type: Spontaneous
  Country: US (occurrence: US)
  Receive Date: 20190516
  Receipt Date: 20190516
  Transmission Date: 20190711
  Serious: Yes (Hospitalization, Other)
  Sender: FDA-Public Use
  Company Number: US-JNJFOC-20190518423

PATIENT
  Age: 75 Year
  Sex: Male
  Weight: 113 kg

DRUGS (2)
  1. VENETOCLAX. [Suspect]
     Active Substance: VENETOCLAX
     Indication: MANTLE CELL LYMPHOMA STAGE IV
     Route: 065
     Dates: start: 20190213, end: 20190419
  2. IMBRUVICA [Suspect]
     Active Substance: IBRUTINIB
     Indication: MANTLE CELL LYMPHOMA STAGE IV
     Route: 065
     Dates: start: 20190227, end: 20190419

REACTIONS (9)
  - Interstitial lung disease [Not Recovered/Not Resolved]
  - Pulmonary hypertension [Unknown]
  - Respiratory tract procedural complication [Unknown]
  - Diarrhoea [Unknown]
  - Cardiac failure congestive [Not Recovered/Not Resolved]
  - Pulmonary alveolar haemorrhage [Unknown]
  - Candida test positive [Unknown]
  - Immunodeficiency [Not Recovered/Not Resolved]
  - Atrial fibrillation [Not Recovered/Not Resolved]

NARRATIVE: CASE EVENT DATE: 201904
